FAERS Safety Report 6781980-6 (Version None)
Quarter: 2010Q2

REPORT INFORMATION
  Report Type: 
  Country: None (occurrence: None)
  Receive Date: 20100618
  Receipt Date: 20100618
  Transmission Date: 20101027
  Serious: Yes (Disabling, Other)
  Sender: FDA-Public Use
  Company Number: None

PATIENT
  Sex: Female
  Weight: 65.7716 kg

DRUGS (1)
  1. ACTONEL [Suspect]
     Indication: OSTEOPOROSIS PROPHYLAXIS
     Dosage: 150 MG MONTHLY

REACTIONS (5)
  - GINGIVAL HYPERPLASIA [None]
  - HYPOTHYROIDISM [None]
  - SWELLING FACE [None]
  - TOOTHACHE [None]
  - TRISMUS [None]
